FAERS Safety Report 8239053-1 (Version None)
Quarter: 2012Q1

REPORT INFORMATION
  Report Type: 
  Country: None (occurrence: None)
  Receive Date: 20120327
  Receipt Date: 20120323
  Transmission Date: 20120608
  Serious: Yes (Disabling, Other)
  Sender: FDA-Public Use
  Company Number: US-MERCK-1111USA02472

PATIENT
  Age: 60 Year
  Sex: Female

DRUGS (1)
  1. FOSAMAX [Suspect]
     Route: 048
     Dates: start: 20060101, end: 20090101

REACTIONS (16)
  - ANXIETY [None]
  - RHEUMATOID ARTHRITIS [None]
  - OSTEOPOROSIS [None]
  - DENTAL CARIES [None]
  - ADVERSE EVENT [None]
  - OSTEOMYELITIS [None]
  - FISTULA DISCHARGE [None]
  - PAIN IN JAW [None]
  - PERIODONTAL DISEASE [None]
  - ORAL PAIN [None]
  - IMPAIRED HEALING [None]
  - DEPRESSION [None]
  - ORAL INFECTION [None]
  - EXPOSED BONE IN JAW [None]
  - STOMATITIS [None]
  - OSTEONECROSIS OF JAW [None]
